FAERS Safety Report 9537921 (Version 2)
Quarter: 2013Q3

REPORT INFORMATION
  Report Type: Spontaneous
  Country: TR (occurrence: TR)
  Receive Date: 20130919
  Receipt Date: 20130925
  Transmission Date: 20140515
  Serious: Yes (Other)
  Sender: FDA-Public Use
  Company Number: PHHY2013TR101659

PATIENT
  Sex: Female
  Weight: 7.89 kg

DRUGS (4)
  1. OXALIPLATIN [Suspect]
     Dosage: MATERNAL DOSE: 85 MG/M2 FOR 2 HOURS
     Route: 064
  2. 5-FLUOROURACIL [Suspect]
     Dosage: MATERNAL DOSE: 200 MG/M2 BOLUS
     Route: 064
  3. 5-FLUOROURACIL [Suspect]
     Dosage: MATERNAL DOSE: 600MG/M2
     Route: 064
  4. FOLINIC ACID [Suspect]
     Dosage: MATERNAL DOSE: 200 MG/M2
     Route: 064

REACTIONS (4)
  - Foetal growth restriction [Unknown]
  - Low birth weight baby [Unknown]
  - Small for dates baby [Unknown]
  - Foetal exposure during pregnancy [Unknown]
